FAERS Safety Report 13656132 (Version 2)
Quarter: 2017Q3

REPORT INFORMATION
  Report Type: Spontaneous
  Country: CA (occurrence: CA)
  Receive Date: 20170615
  Receipt Date: 20170810
  Transmission Date: 20171127
  Serious: Yes (Hospitalization)
  Sender: FDA-Public Use
  Company Number: CA-PFIZER INC-2017176611

PATIENT
  Age: 24 Year
  Sex: Female

DRUGS (7)
  1. KOREAN GINSENG [Concomitant]
     Dosage: UNK
     Dates: start: 201604, end: 201608
  2. PRISTIQ EXTENDED-RELEASE [Suspect]
     Active Substance: DESVENLAFAXINE SUCCINATE
     Indication: DEPRESSION
     Dosage: 50 MG, UNK
     Dates: start: 201602, end: 201605
  3. PRISTIQ EXTENDED-RELEASE [Suspect]
     Active Substance: DESVENLAFAXINE SUCCINATE
     Dosage: 100 MG, UNK
     Dates: start: 20160704, end: 2016
  4. PRISTIQ EXTENDED-RELEASE [Suspect]
     Active Substance: DESVENLAFAXINE SUCCINATE
     Dosage: 200 MG, 1X/DAY (IN THE MORNING)
     Dates: start: 20161118
  5. NAPROXEN. [Concomitant]
     Active Substance: NAPROXEN
     Indication: MUSCLE SPASMS
     Dosage: AS NEEDED
     Dates: start: 201603
  6. PRISTIQ EXTENDED-RELEASE [Suspect]
     Active Substance: DESVENLAFAXINE SUCCINATE
     Indication: ANXIETY
     Dosage: 75 MG, UNK
     Dates: start: 20160624, end: 2016
  7. PRISTIQ EXTENDED-RELEASE [Suspect]
     Active Substance: DESVENLAFAXINE SUCCINATE
     Dosage: 150 MG, DAILY
     Dates: start: 20160805, end: 2016

REACTIONS (5)
  - Urticaria [Not Recovered/Not Resolved]
  - Intentional product misuse [Unknown]
  - Depersonalisation/derealisation disorder [Not Recovered/Not Resolved]
  - Feeling abnormal [Unknown]
  - Discomfort [Unknown]

NARRATIVE: CASE EVENT DATE: 201603
